FAERS Safety Report 6422894-0 (Version None)
Quarter: 2009Q4

REPORT INFORMATION
  Report Type: 
  Country: None (occurrence: None)
  Receive Date: 20091102
  Receipt Date: 20091026
  Transmission Date: 20100525
  Serious: Yes (Other)
  Sender: FDA-Public Use
  Company Number: SG-ROCHE-664682

PATIENT
  Sex: Female

DRUGS (4)
  1. CAPECITABINE [Suspect]
     Indication: METASTASIS
     Dosage: FREQUENCY: DAYS 1-14, EVERY 3 WEEKS
     Route: 048
  2. BEVACIZUMAB [Suspect]
     Indication: METASTASIS
     Route: 065
  3. GOSERELIN [Suspect]
     Indication: DRUG USE FOR UNKNOWN INDICATION
     Route: 058
  4. LETROZOLE [Suspect]
     Indication: DRUG USE FOR UNKNOWN INDICATION
     Route: 048

REACTIONS (2)
  - BREAST CANCER METASTATIC [None]
  - SUBDURAL HAEMATOMA [None]
